FAERS Safety Report 15017347 (Version 29)
Quarter: 2023Q2

REPORT INFORMATION
  Report Type: Report from Study
  Country: CH (occurrence: CH)
  Receive Date: 20180615
  Receipt Date: 20230610
  Transmission Date: 20230721
  Serious: Yes (Death, Other)
  Sender: FDA-Public Use
  Company Number: CH-SM-2019-12029

PATIENT
  Age: 56 Year
  Sex: Male
  Weight: 64 kg

DRUGS (14)
  1. OFEV [Suspect]
     Active Substance: NINTEDANIB
     Indication: Idiopathic pulmonary fibrosis
     Route: 048
     Dates: start: 20170815, end: 201804
  2. OFEV [Suspect]
     Active Substance: NINTEDANIB
     Route: 048
     Dates: start: 20180415, end: 20180421
  3. OFEV [Suspect]
     Active Substance: NINTEDANIB
     Route: 048
     Dates: start: 20180422
  4. OFEV [Suspect]
     Active Substance: NINTEDANIB
     Route: 048
     Dates: start: 20181102
  5. OFEV [Suspect]
     Active Substance: NINTEDANIB
     Route: 048
     Dates: start: 20181209
  6. OFEV [Suspect]
     Active Substance: NINTEDANIB
     Route: 048
     Dates: end: 20190410
  7. OFEV [Suspect]
     Active Substance: NINTEDANIB
     Route: 048
     Dates: start: 20190424
  8. OFEV [Suspect]
     Active Substance: NINTEDANIB
     Route: 048
     Dates: start: 20190427
  9. OFEV [Suspect]
     Active Substance: NINTEDANIB
     Route: 048
  10. OFEV [Suspect]
     Active Substance: NINTEDANIB
     Dosage: STRENGTH- 100/150MG?100MG ONCE PLUS 150MG ONCE.
     Route: 048
  11. VITAMIN B12 [Suspect]
     Active Substance: CYANOCOBALAMIN
     Indication: Product used for unknown indication
  12. VITAMIN B12 [Suspect]
     Active Substance: CYANOCOBALAMIN
  13. PANTOZOL [Concomitant]
     Active Substance: PANTOPRAZOLE SODIUM
     Indication: Product used for unknown indication
     Route: 048
  14. PANTOZOL [Concomitant]
     Active Substance: PANTOPRAZOLE SODIUM
     Dosage: TRAITEMENT HABITUEL
     Route: 048

REACTIONS (26)
  - Idiopathic pulmonary fibrosis [Fatal]
  - Dyspepsia [Not Recovered/Not Resolved]
  - Cough [Recovered/Resolved]
  - Keratorhexis [Unknown]
  - Atrial fibrillation [Recovered/Resolved]
  - Atrial fibrillation [Recovered/Resolved]
  - Atrial fibrillation [Recovered/Resolved]
  - Corneal epithelium defect [Not Recovered/Not Resolved]
  - Cataract [Recovered/Resolved]
  - Diarrhoea [Not Recovered/Not Resolved]
  - Cough [Not Recovered/Not Resolved]
  - Diarrhoea [Recovered/Resolved]
  - Abdominal pain [Not Recovered/Not Resolved]
  - Nasopharyngitis [Recovered/Resolved]
  - Nasopharyngitis [Recovered/Resolved]
  - Rhinitis [Recovered/Resolved]
  - Rhinitis [Not Recovered/Not Resolved]
  - Gastric ulcer [Recovered/Resolved]
  - Norovirus infection [Unknown]
  - Weight decreased [Recovered/Resolved]
  - Faecal calprotectin increased [Not Recovered/Not Resolved]
  - Platelet count decreased [Recovered/Resolved]
  - Cytogenetic abnormality [Not Recovered/Not Resolved]
  - Serum ferritin increased [Recovered/Resolved]
  - Transferrin increased [Recovered/Resolved]
  - Incorrect dose administered [Recovered/Resolved]

NARRATIVE: CASE EVENT DATE: 20220627
